FAERS Safety Report 9174290 (Version 1)
Quarter: 2013Q1

REPORT INFORMATION
  Report Type: Spontaneous
  Country: US (occurrence: US)
  Receive Date: 20130320
  Receipt Date: 20130320
  Transmission Date: 20140127
  Serious: Yes (Death, Other)
  Sender: FDA-Public Use
  Company Number: US-JNJFOC-20040604278

PATIENT
  Age: 54 Year
  Sex: Female

DRUGS (4)
  1. ACETAMINOPHEN [Suspect]
  2. ACETAMINOPHEN [Suspect]
     Indication: SUICIDE ATTEMPT
  3. ASPIRIN [Suspect]
     Indication: SUICIDE ATTEMPT
  4. IBUPROFEN [Suspect]
     Indication: SUICIDE ATTEMPT

REACTIONS (4)
  - Completed suicide [Fatal]
  - Coma [Unknown]
  - Acidosis [Unknown]
  - Hypotension [Unknown]
